FAERS Safety Report 9678053 (Version 1)
Quarter: 2013Q4

REPORT INFORMATION
  Report Type: Spontaneous
  Country: JP (occurrence: None)
  Receive Date: 20131106
  Receipt Date: 20131106
  Transmission Date: 20140711
  Serious: Yes (Hospitalization)
  Sender: FDA-Public Use
  Company Number: 2013P1020426

PATIENT
  Age: 79 Year
  Sex: Female

DRUGS (2)
  1. METHYLPREDNISOLONE [Suspect]
     Indication: NEPHROTIC SYNDROME
  2. PREDNISOLONE [Suspect]
     Indication: NEPHROTIC SYNDROME

REACTIONS (12)
  - Renal failure acute [None]
  - Oliguria [None]
  - Haemodialysis [None]
  - General physical health deterioration [None]
  - Cerebral infarction [None]
  - Vomiting [None]
  - Haematemesis [None]
  - Gastric haemorrhage [None]
  - Anuria [None]
  - Thrombotic microangiopathy [None]
  - Haemolytic anaemia [None]
  - Stupor [None]
